FAERS Safety Report 25637503 (Version 1)
Quarter: 2025Q3

REPORT INFORMATION
  Report Type: Spontaneous
  Country: US (occurrence: US)
  Receive Date: 20250804
  Receipt Date: 20250804
  Transmission Date: 20251020
  Serious: No
  Sender: BRISTOL-MYERS SQUIBB COMPANY
  Company Number: US-BRISTOL-MYERS SQUIBB COMPANY-2025-107615

PATIENT
  Age: 50 Year
  Sex: Male

DRUGS (1)
  1. SOTYKTU [Suspect]
     Active Substance: DEUCRAVACITINIB
     Indication: Psoriasis
     Dosage: ONCE DAILY
     Route: 048
     Dates: start: 202506

REACTIONS (3)
  - Erythema [Unknown]
  - Pruritus [Unknown]
  - Skin burning sensation [Unknown]
